FAERS Safety Report 5169686-0 (Version None)
Quarter: 2006Q4

REPORT INFORMATION
  Report Type: 
  Country: None (occurrence: None)
  Receive Date: 20061212
  Receipt Date: 20061130
  Transmission Date: 20070319
  Serious: Yes (Other)
  Sender: FDA-Public Use
  Company Number: PHBS2006TW18776

PATIENT
  Age: 50 Year
  Sex: Female
  Weight: 73 kg

DRUGS (1)
  1. CO-DIOVAN [Suspect]
     Indication: HYPERTENSION
     Route: 048
     Dates: start: 20061109

REACTIONS (5)
  - CARDIAC HYPERTROPHY [None]
  - CARDIAC MURMUR [None]
  - HEART RATE INCREASED [None]
  - HYPERTENSION [None]
  - NECK PAIN [None]
